FAERS Safety Report 6253525-0 (Version None)
Quarter: 2009Q2

REPORT INFORMATION
  Report Type: 
  Country: None (occurrence: None)
  Receive Date: 20090629
  Receipt Date: 20090629
  Transmission Date: 20091009
  Serious: No
  Sender: FDA-Public Use
  Company Number: None

PATIENT
  Age: 49 Year
  Sex: Female
  Weight: 65.7716 kg

DRUGS (1)
  1. ENALAPRIL MALEATE [Suspect]
     Indication: HYPERTENSION
     Dosage: ONE TABLET DAILY PO
     Route: 048
     Dates: start: 19990919, end: 20090625

REACTIONS (5)
  - COUGH [None]
  - DRY MOUTH [None]
  - HYPERHIDROSIS [None]
  - HYPOAESTHESIA [None]
  - PARAESTHESIA [None]
